FAERS Safety Report 8155958-4 (Version None)
Quarter: 2012Q1

REPORT INFORMATION
  Report Type: 
  Country: None (occurrence: None)
  Receive Date: 20120222
  Receipt Date: 20120214
  Transmission Date: 20120608
  Serious: No
  Sender: FDA-Public Use
  Company Number: US-PFIZER INC-2012021124

PATIENT
  Sex: Female
  Weight: 16.78 kg

DRUGS (3)
  1. AZITHROMYCIN [Suspect]
     Indication: UPPER RESPIRATORY TRACT INFECTION
     Dosage: 3.75 ML, 1X/DAY
     Route: 048
     Dates: start: 20120124, end: 20120125
  2. ZITHROMAX [Suspect]
     Dosage: 75 MG, UNK
     Dates: start: 20120126
  3. ZITHROMAX [Suspect]
     Dosage: 150 MG, UNK
     Route: 048
     Dates: start: 20120125

REACTIONS (1)
  - VISUAL IMPAIRMENT [None]
